FAERS Safety Report 21302292 (Version 2)
Quarter: 2022Q3

REPORT INFORMATION
  Report Type: Spontaneous
  Country: GB (occurrence: GB)
  Receive Date: 20220907
  Receipt Date: 20220919
  Transmission Date: 20221026
  Serious: Yes (Hospitalization)
  Sender: FDA-Public Use
  Company Number: GB-VERTEX PHARMACEUTICALS-2022-013103

PATIENT
  Sex: Female
  Weight: 2 kg

DRUGS (13)
  1. ELEXACAFTOR\IVACAFTOR\TEZACAFTOR [Suspect]
     Active Substance: ELEXACAFTOR\IVACAFTOR\TEZACAFTOR
     Indication: Cystic fibrosis
     Dosage: (75 MG IVA/50 MG TEZA/100 MG ELEXA), 2 TABLETS IN THE MORNING
     Route: 048
     Dates: start: 20200430
  2. KALYDECO [Suspect]
     Active Substance: IVACAFTOR
     Indication: Cystic fibrosis
     Dosage: 1 TABLET AT NIGHT
     Route: 048
     Dates: start: 20200430
  3. COLOMYCIN [Concomitant]
     Indication: Cystic fibrosis
     Dosage: 2 MU
     Route: 055
     Dates: start: 2015
  4. DORNASE ALFA [Concomitant]
     Active Substance: DORNASE ALFA
     Indication: Cystic fibrosis
     Dosage: QD
     Route: 055
     Dates: start: 2015
  5. AZITHROMYCIN [Concomitant]
     Active Substance: AZITHROMYCIN
     Indication: Cystic fibrosis
     Dosage: M,W,F
     Dates: start: 2008
  6. FLUCLOXACILLIN [Concomitant]
     Active Substance: FLUCLOXACILLIN
     Indication: Cystic fibrosis
     Dosage: BID
     Dates: start: 1998
  7. CREON [Concomitant]
     Active Substance: PANCRELIPASE AMYLASE\PANCRELIPASE LIPASE\PANCRELIPASE PROTEASE
     Indication: Cystic fibrosis
     Dosage: 2-4 CAPSULES WITH MEALS
     Dates: start: 1998
  8. VITAMIN E [Concomitant]
     Active Substance: .ALPHA.-TOCOPHEROL
     Indication: Cystic fibrosis
     Dosage: QD
     Dates: start: 1998
  9. OMEPRAZOLE [Concomitant]
     Active Substance: OMEPRAZOLE
     Indication: Gastrooesophageal reflux disease
     Dosage: QD
     Dates: start: 2015
  10. ASPIRIN [Concomitant]
     Active Substance: ASPIRIN
     Indication: Anti-platelet antibody
     Dosage: QD
     Dates: start: 20220215, end: 20220630
  11. SODIUM CHLORIDE [Concomitant]
     Active Substance: SODIUM CHLORIDE
     Indication: Cystic fibrosis
     Dosage: BID
     Route: 055
     Dates: start: 2012
  12. FOLIC ACID [Concomitant]
     Active Substance: FOLIC ACID
     Dosage: QD
     Dates: start: 202201, end: 20220630
  13. FERROUS FUMARATE [Concomitant]
     Active Substance: FERROUS FUMARATE
     Indication: Iron deficiency
     Dosage: QD
     Dates: start: 202205, end: 202207

REACTIONS (1)
  - Intensive care [Unknown]

NARRATIVE: CASE EVENT DATE: 20220101
